FAERS Safety Report 5252988-7 (Version None)
Quarter: 2007Q1

REPORT INFORMATION
  Report Type: 
  Country: None (occurrence: None)
  Receive Date: 20070227
  Receipt Date: 20070212
  Transmission Date: 20070707
  Serious: Yes (Hospitalization, Other)
  Sender: FDA-Public Use
  Company Number: 15708

PATIENT
  Age: 47 Year
  Sex: Female

DRUGS (3)
  1. METHOTREXATE [Suspect]
     Indication: PSORIATIC ARTHROPATHY
     Dosage: 10 MG WEEKLY IM
     Route: 030
  2. NON-STEROIDAL ANTI-INFLAMMATORY (UNSPECIFIED) [Concomitant]
  3. B-BLOCKERS (UNSPECIFIED) [Concomitant]

REACTIONS (2)
  - OPTIC NEUROPATHY [None]
  - SCOTOMA [None]
